FAERS Safety Report 5854278-8 (Version None)
Quarter: 2008Q3

REPORT INFORMATION
  Report Type: 
  Country: None (occurrence: None)
  Receive Date: 20080822
  Receipt Date: 20080812
  Transmission Date: 20090109
  Serious: Yes (Other)
  Sender: FDA-Public Use
  Company Number: US-PFIZER INC-2008069097

PATIENT
  Sex: Female
  Weight: 59.09 kg

DRUGS (3)
  1. CHANTIX [Suspect]
     Indication: NICOTINE DEPENDENCE
  2. FLUOXETINE [Concomitant]
     Indication: ANXIETY
  3. FLUOXETINE [Concomitant]
     Indication: DEPRESSION

REACTIONS (2)
  - ANXIETY [None]
  - DEPRESSION [None]
